FAERS Safety Report 20863824 (Version 2)
Quarter: 2022Q2

REPORT INFORMATION
  Report Type: Report from Study
  Country: EG (occurrence: EG)
  Receive Date: 20220523
  Receipt Date: 20220528
  Transmission Date: 20220721
  Serious: Yes (Hospitalization, Other)
  Sender: FDA-Public Use
  Company Number: EG-NOVARTISPH-NVSC2022EG059508

PATIENT
  Age: 33 Year
  Sex: Female

DRUGS (7)
  1. GILENYA [Suspect]
     Active Substance: FINGOLIMOD HYDROCHLORIDE
     Indication: Multiple sclerosis
     Dosage: 0.5 MG, QD
     Route: 048
     Dates: start: 20220310
  2. GILENYA [Suspect]
     Active Substance: FINGOLIMOD HYDROCHLORIDE
     Dosage: 0.5 MG, QD
     Route: 065
     Dates: start: 20220402
  3. GILENYA [Suspect]
     Active Substance: FINGOLIMOD HYDROCHLORIDE
     Dosage: 0.5 MG, EVERY OTHER DAY
     Route: 048
     Dates: start: 20220329
  4. BENFOTIAMINE\CYANOCOBALAMIN\PYRIDOXINE HYDROCHLORIDE [Concomitant]
     Active Substance: BENFOTIAMINE\CYANOCOBALAMIN\PYRIDOXINE HYDROCHLORIDE
     Indication: Multiple sclerosis
     Dosage: 1 DOSAGE FORM, QD
     Route: 065
     Dates: start: 20220312
  5. BENFOTIAMINE\CYANOCOBALAMIN\PYRIDOXINE HYDROCHLORIDE [Concomitant]
     Active Substance: BENFOTIAMINE\CYANOCOBALAMIN\PYRIDOXINE HYDROCHLORIDE
     Indication: Tremor
     Dosage: 10 DAYS AGO, BID
     Route: 065
  6. OMEGA 3 [Concomitant]
     Active Substance: CAPSAICIN
     Indication: Tremor
     Dosage: UNK, TID (10 DAYS AGO)
     Route: 065
  7. PANADOL [Concomitant]
     Active Substance: ACETAMINOPHEN
     Indication: Headache
     Dosage: 2 TAB ONCE WHEN NEEDED (MAYBE ONCE OR TWICE DAILY)
     Route: 065

REACTIONS (16)
  - Urticaria [Recovering/Resolving]
  - Pruritus [Recovering/Resolving]
  - Suicide attempt [Recovering/Resolving]
  - Depression [Not Recovered/Not Resolved]
  - Central nervous system lesion [Unknown]
  - Tremor [Not Recovered/Not Resolved]
  - Dyskinesia [Not Recovered/Not Resolved]
  - Burning sensation [Recovered/Resolved]
  - Somnolence [Recovering/Resolving]
  - Hypoperfusion [Recovering/Resolving]
  - Heart rate decreased [Recovering/Resolving]
  - Feeling cold [Recovering/Resolving]
  - Limb discomfort [Recovering/Resolving]
  - Fatigue [Recovering/Resolving]
  - Drug monitoring procedure not performed [Unknown]
  - Inappropriate schedule of product administration [Unknown]

NARRATIVE: CASE EVENT DATE: 20220310
